FAERS Safety Report 5568684-2 (Version None)
Quarter: 2007Q4

REPORT INFORMATION
  Report Type: 
  Country: None (occurrence: None)
  Receive Date: 20071217
  Receipt Date: 20071206
  Transmission Date: 20080405
  Serious: Yes (Hospitalization)
  Sender: FDA-Public Use
  Company Number: 2007-167796-NL

PATIENT
  Age: 28 Year
  Sex: Female

DRUGS (1)
  1. ETONOGESTREL (BATCH # 935795/139879) [Suspect]
     Dosage: DF
     Dates: start: 20070821, end: 20070101

REACTIONS (6)
  - CYSTITIS [None]
  - FEELING COLD [None]
  - LYMPHANGITIS [None]
  - SYNCOPE [None]
  - VIRAL INFECTION [None]
  - WEIGHT INCREASED [None]
